FAERS Safety Report 10498384 (Version 2)
Quarter: 2014Q4

REPORT INFORMATION
  Report Type: Report from Study
  Country: US (occurrence: US)
  Receive Date: 20141006
  Receipt Date: 20141006
  Transmission Date: 20150528
  Serious: Yes (Hospitalization)
  Sender: FDA-Public Use
  Company Number: PHEH2014US009828

PATIENT
  Age: 23 Year
  Sex: Female

DRUGS (4)
  1. PRILOSEC [Concomitant]
     Active Substance: OMEPRAZOLE MAGNESIUM
     Dosage: UNK UKN, UNK
  2. CLARITIN [Concomitant]
     Active Substance: LORATADINE
     Dosage: UNK UKN, UNK
  3. SINGULAIR [Concomitant]
     Active Substance: MONTELUKAST SODIUM
     Dosage: UNK UKN, UNK
  4. AFINITOR [Suspect]
     Active Substance: EVEROLIMUS
     Indication: ANGIOMYOLIPOMA
     Dosage: 10 MG, DAILY
     Route: 048
     Dates: start: 20140508, end: 20140614

REACTIONS (24)
  - Back pain [Unknown]
  - Dyspnoea [Unknown]
  - Pallor [Unknown]
  - Urine odour abnormal [Not Recovered/Not Resolved]
  - Anal haemorrhage [Unknown]
  - Asthenia [Unknown]
  - Proctalgia [Unknown]
  - Epistaxis [Unknown]
  - Skin tightness [Not Recovered/Not Resolved]
  - Fatigue [Unknown]
  - Stomatitis [Unknown]
  - Cyst [Unknown]
  - Genital pain [Recovering/Resolving]
  - Pain [Unknown]
  - Throat irritation [Unknown]
  - Rash erythematous [Not Recovered/Not Resolved]
  - Aspartate aminotransferase increased [Unknown]
  - Platelet count decreased [Unknown]
  - Contusion [Unknown]
  - Blood pressure increased [Not Recovered/Not Resolved]
  - Blood glucose abnormal [Unknown]
  - Renal pain [Unknown]
  - Chest pain [Unknown]
  - Acne [Unknown]

NARRATIVE: CASE EVENT DATE: 20140510
